FAERS Safety Report 16709217 (Version 4)
Quarter: 2020Q3

REPORT INFORMATION
  Report Type: Report from Study
  Country: DE (occurrence: DE)
  Receive Date: 20190816
  Receipt Date: 20200928
  Transmission Date: 20201102
  Serious: Yes (Hospitalization, Other)
  Sender: FDA-Public Use
  Company Number: PHHY2019DE187394

PATIENT
  Age: 56 Year
  Sex: Male

DRUGS (2)
  1. TRAMETINIB [Suspect]
     Active Substance: TRAMETINIB
     Indication: METASTATIC MALIGNANT MELANOMA
     Dosage: 2 MG, QD
     Route: 048
     Dates: start: 20180919, end: 20190716
  2. TAFINLAR [Suspect]
     Active Substance: DABRAFENIB MESYLATE
     Indication: METASTATIC MALIGNANT MELANOMA
     Dosage: 150 MG, BID
     Route: 048
     Dates: start: 20180919, end: 20190716

REACTIONS (4)
  - Atrial fibrillation [Unknown]
  - Cardiomyopathy [Recovered/Resolved]
  - Dyspnoea [Recovered/Resolved]
  - Ischaemic cardiomyopathy [Recovered/Resolved]

NARRATIVE: CASE EVENT DATE: 20190703
